FAERS Safety Report 22243740 (Version 3)
Quarter: 2023Q4

REPORT INFORMATION
  Report Type: Report from Study
  Country: FR (occurrence: FR)
  Receive Date: 20230424
  Receipt Date: 20231101
  Transmission Date: 20240110
  Serious: Yes (Other)
  Sender: FDA-Public Use
  Company Number: FR-PFIZER INC-202300162036

PATIENT
  Age: 8 Decade
  Sex: Male

DRUGS (5)
  1. PAXLOVID [Interacting]
     Active Substance: NIRMATRELVIR\RITONAVIR
     Indication: COVID-19 treatment
     Dosage: UNK
  2. AMLODIPINE BESYLATE [Interacting]
     Active Substance: AMLODIPINE BESYLATE
     Dosage: UNK
     Route: 065
  3. ATENOLOL [Interacting]
     Active Substance: ATENOLOL
     Dosage: UNK
  4. BISOPROLOL [Interacting]
     Active Substance: BISOPROLOL\BISOPROLOL FUMARATE
     Dosage: UNK
  5. LERCANIDIPINE [Interacting]
     Active Substance: LERCANIDIPINE
     Dosage: UNK

REACTIONS (4)
  - Drug interaction [Unknown]
  - Bradycardia [Unknown]
  - Hypotension [Unknown]
  - Palpitations [Unknown]
